FAERS Safety Report 24125501 (Version 1)
Quarter: 2024Q3

REPORT INFORMATION
  Report Type: Spontaneous
  Country: US (occurrence: US)
  Receive Date: 20240723
  Receipt Date: 20240723
  Transmission Date: 20241016
  Serious: No
  Sender: STEMLINE THERAPEUTICS
  Company Number: US-Stemline Therapeutics, Inc.-2024ST002998

PATIENT
  Age: 97 Year
  Sex: Female

DRUGS (1)
  1. ORSERDU [Suspect]
     Active Substance: ELACESTRANT
     Indication: Product used for unknown indication
     Route: 048
     Dates: start: 20240420

REACTIONS (7)
  - Malaise [Not Recovered/Not Resolved]
  - Eating disorder [Unknown]
  - Inadequate diet [Unknown]
  - Abdominal discomfort [Unknown]
  - Vomiting [Unknown]
  - Neoplasm progression [Unknown]
  - Drug ineffective [Not Recovered/Not Resolved]
